FAERS Safety Report 9249697 (Version 1)
Quarter: 2013Q2

REPORT INFORMATION
  Report Type: Spontaneous
  Country: US (occurrence: US)
  Receive Date: 20130423
  Receipt Date: 20130423
  Transmission Date: 20140414
  Serious: No
  Sender: FDA-Public Use
  Company Number: US-BRISTOL-MYERS SQUIBB COMPANY-17277096

PATIENT
  Age: 61 Year
  Sex: Female

DRUGS (1)
  1. YERVOY [Suspect]
     Dosage: RECENT INFUSION:19DEC2012

REACTIONS (8)
  - Chills [Unknown]
  - Feeling cold [Unknown]
  - Back pain [Unknown]
  - Neck pain [Unknown]
  - Tremor [Unknown]
  - Rash generalised [Unknown]
  - Fatigue [Unknown]
  - Anaemia [Unknown]
